FAERS Safety Report 4689886-3 (Version None)
Quarter: 2005Q2

REPORT INFORMATION
  Report Type: 
  Country: None (occurrence: None)
  Receive Date: 20050608
  Receipt Date: 20050328
  Transmission Date: 20051028
  Serious: No
  Sender: FDA-Public Use
  Company Number: 2005-BP-05161BP

PATIENT
  Age: 36 Year
  Sex: Female

DRUGS (5)
  1. SPIRIVA [Suspect]
     Indication: ASTHMA
     Dosage: 18 MCG (18 MCG, QD), IH
     Route: 055
     Dates: start: 20050101, end: 20050327
  2. ALBUTEROL [Concomitant]
  3. SEREVENT [Concomitant]
  4. FLOVENT [Concomitant]
  5. ACCOLATE [Concomitant]

REACTIONS (2)
  - DRUG INEFFECTIVE [None]
  - DYSPNOEA EXACERBATED [None]
